FAERS Safety Report 9605085 (Version 3)
Quarter: 2013Q4

REPORT INFORMATION
  Report Type: Spontaneous
  Country: JP (occurrence: JP)
  Receive Date: 20131008
  Receipt Date: 20131106
  Transmission Date: 20140711
  Serious: Yes (Death, Hospitalization)
  Sender: FDA-Public Use
  Company Number: JP-009507513-1310JPN001501

PATIENT
  Age: 72 Year
  Sex: Male
  Weight: 47 kg

DRUGS (2)
  1. ESLAX [Suspect]
     Indication: NEUROMUSCULAR BLOCKING THERAPY
     Dosage: 7 MICROGRAM PER KILOGRAM, 1 MINUTE
     Route: 042
     Dates: start: 20130918, end: 20130924
  2. BRIDION INTRAVENOUS 200MG [Concomitant]
     Indication: NEUROMUSCULAR BLOCKADE REVERSAL
     Dosage: 4 MG/KG, UNK, SEPARATE NO: 3
     Route: 042
     Dates: start: 20130926, end: 20130927

REACTIONS (2)
  - Death [Fatal]
  - Neuromuscular block prolonged [Fatal]
